FAERS Safety Report 16122742 (Version 1)
Quarter: 2019Q1

REPORT INFORMATION
  Report Type: Spontaneous
  Country: US (occurrence: US)
  Receive Date: 20190222
  Receipt Date: 20190222
  Transmission Date: 20190418
  Serious: Yes (Hospitalization)
  Sender: FDA-Public Use
  Company Number: None

PATIENT
  Age: 65 Year
  Sex: Male

DRUGS (16)
  1. BISOPROL [Concomitant]
     Active Substance: BISOPROLOL FUMARATE
  2. GABAPENTINHYROP [Concomitant]
  3. TIZANIDINE. [Concomitant]
     Active Substance: TIZANIDINE
  4. AMOX [Concomitant]
     Active Substance: UNSPECIFIED INGREDIENT
  5. BETAMETHASON [Concomitant]
     Active Substance: BETAMETHASONE
  6. OMEPRAZOLE. [Concomitant]
     Active Substance: OMEPRAZOLE
  7. ONDANSETRON [Concomitant]
     Active Substance: ONDANSETRON
  8. HUMIRA [Suspect]
     Active Substance: ADALIMUMAB
     Indication: PSORIASIS
     Dosage: ?          OTHER FREQUENCY:EVERY 14 DAYS ;?
     Route: 058
     Dates: start: 20180126
  9. MULTIVITAMIN [Concomitant]
     Active Substance: VITAMINS
  10. DULOXETINE. [Concomitant]
     Active Substance: DULOXETINE
  11. LEVOTHYROXIN [Concomitant]
     Active Substance: LEVOTHYROXINE
  12. CLOBETASOL [Concomitant]
     Active Substance: CLOBETASOL
  13. SIMVASTATIN. [Concomitant]
     Active Substance: SIMVASTATIN
  14. ADVAIR HFA [Concomitant]
     Active Substance: FLUTICASONE PROPIONATE\SALMETEROL XINAFOATE
  15. LISINOPRIL. [Concomitant]
     Active Substance: LISINOPRIL
  16. VITAMIN D [Concomitant]
     Active Substance: CHOLECALCIFEROL

REACTIONS (1)
  - Pneumonia [None]

NARRATIVE: CASE EVENT DATE: 20190209
